FAERS Safety Report 19959512 (Version 3)
Quarter: 2022Q1

REPORT INFORMATION
  Report Type: Spontaneous
  Country: US (occurrence: US)
  Receive Date: 20211015
  Receipt Date: 20220204
  Transmission Date: 20220424
  Serious: No
  Sender: FDA-Public Use
  Company Number: US-PFIZER INC-202101325532

PATIENT
  Age: 47 Year
  Sex: Male

DRUGS (1)
  1. XELJANZ XR [Suspect]
     Active Substance: TOFACITINIB CITRATE
     Indication: Rheumatoid arthritis
     Dosage: 11 MG, 1X/DAY
     Route: 048
     Dates: start: 202201

REACTIONS (8)
  - Drug ineffective [Unknown]
  - Product dose omission issue [Unknown]
  - Confusional state [Unknown]
  - Pain [Unknown]
  - Inflammation [Unknown]
  - Fatigue [Unknown]
  - Skin discolouration [Unknown]
  - Hypokinesia [Unknown]
